FAERS Safety Report 6896471-1 (Version None)
Quarter: 2010Q3

REPORT INFORMATION
  Report Type: 
  Country: None (occurrence: None)
  Receive Date: 20100802
  Receipt Date: 20090225
  Transmission Date: 20110219
  Serious: No
  Sender: FDA-Public Use
  Company Number: US-PFIZER INC-2009175995

PATIENT
  Sex: Male
  Weight: 86.2 kg

DRUGS (4)
  1. AMLODIPINE BESYLATE [Suspect]
     Indication: HYPERTENSION
     Dosage: 10 MG, 1X/DAY
     Dates: start: 20090224
  2. PREVACID [Concomitant]
  3. FLONASE [Concomitant]
  4. BENICAR [Concomitant]
     Dates: end: 20090224

REACTIONS (1)
  - OEDEMA PERIPHERAL [None]
